FAERS Safety Report 19044733 (Version 1)
Quarter: 2021Q1

REPORT INFORMATION
  Report Type: Spontaneous
  Country: JP (occurrence: JP)
  Receive Date: 20210323
  Receipt Date: 20210323
  Transmission Date: 20210420
  Serious: Yes (Other)
  Sender: FDA-Public Use
  Company Number: JP-GLAXOSMITHKLINE-JP2021063631

PATIENT
  Age: 77 Year
  Sex: Female

DRUGS (2)
  1. ALLERMIST [Suspect]
     Active Substance: FLUTICASONE FUROATE
     Dosage: UNK
     Route: 045
     Dates: start: 20210317
  2. ALLERMIST [Suspect]
     Active Substance: FLUTICASONE FUROATE
     Indication: RHINITIS
     Dosage: UNK, PRN
     Route: 045

REACTIONS (5)
  - Overdose [Unknown]
  - Epistaxis [Recovered/Resolved]
  - Product use issue [Unknown]
  - Oropharyngeal cancer [Unknown]
  - Nasal pruritus [Recovered/Resolved]

NARRATIVE: CASE EVENT DATE: 20210317
